FAERS Safety Report 4522786-8 (Version None)
Quarter: 2004Q4

REPORT INFORMATION
  Report Type: 
  Country: None (occurrence: None)
  Receive Date: 20041207
  Receipt Date: 20041119
  Transmission Date: 20050328
  Serious: Yes (Hospitalization)
  Sender: FDA-Public Use
  Company Number: F02200400073

PATIENT
  Age: 80 Year
  Sex: Male

DRUGS (4)
  1. XATRAL - (ALFUZOSIN) - TABLET PR - 10 MG [Suspect]
     Indication: BENIGN PROSTATIC HYPERPLASIA
     Dosage: 10 MG OD ORAL
     Route: 048
     Dates: start: 20010315, end: 20040517
  2. ALLOPURINOL [Concomitant]
  3. ATORVASTATIN CALCIUM [Concomitant]
  4. SPIRONOLACTONE [Concomitant]

REACTIONS (8)
  - BLADDER DIVERTICULUM [None]
  - BLADDER NEOPLASM [None]
  - CYSTITIS NONINFECTIVE [None]
  - HYDROCELE [None]
  - PROSTATIC SPECIFIC ANTIGEN INCREASED [None]
  - PROSTATITIS [None]
  - TESTICULAR SWELLING [None]
  - URINARY RETENTION [None]
